FAERS Safety Report 9158735 (Version 1)
Quarter: 2013Q1

REPORT INFORMATION
  Report Type: Report from Study
  Country: US (occurrence: US)
  Receive Date: 20130312
  Receipt Date: 20130312
  Transmission Date: 20140127
  Serious: Yes (Hospitalization)
  Sender: FDA-Public Use
  Company Number: US-TEVA-2011005754

PATIENT
  Age: 71 Year
  Sex: Male
  Weight: 125.4 kg

DRUGS (5)
  1. TREANDA [Suspect]
     Indication: NON-HODGKIN^S LYMPHOMA
     Route: 042
     Dates: start: 20110429, end: 20110916
  2. COUMADIN [Concomitant]
     Indication: ATRIAL FIBRILLATION
     Dates: start: 20110423, end: 20120713
  3. AMOXIL [Concomitant]
     Indication: LUNG INFECTION
     Dates: start: 20111009, end: 20111018
  4. VALACYCLOVIR [Concomitant]
     Indication: HERPES ZOSTER
     Dates: start: 20110919, end: 20111002
  5. DALTEPARIN [Concomitant]
     Indication: ATRIAL FIBRILLATION
     Dates: start: 20111007, end: 20111014

REACTIONS (1)
  - Lung infection [Recovered/Resolved]
